FAERS Safety Report 11299618 (Version 1)
Quarter: 2015Q3

REPORT INFORMATION
  Report Type: Spontaneous
  Country: US (occurrence: US)
  Receive Date: 20150722
  Receipt Date: 20150722
  Transmission Date: 20151125
  Serious: No
  Sender: FDA-Public Use
  Company Number: US-ELI_LILLY_AND_COMPANY-US201302000834

PATIENT
  Sex: Female

DRUGS (1)
  1. EVISTA [Suspect]
     Active Substance: RALOXIFENE HYDROCHLORIDE
     Indication: OSTEOPOROSIS
     Dosage: 60 MG, UNK

REACTIONS (7)
  - Headache [Unknown]
  - Initial insomnia [Unknown]
  - Dizziness [Unknown]
  - Abdominal pain upper [Unknown]
  - Flatulence [Unknown]
  - Hot flush [Unknown]
  - Intentional product misuse [Unknown]
